FAERS Safety Report 7486084-5 (Version None)
Quarter: 2011Q2

REPORT INFORMATION
  Report Type: 
  Country: None (occurrence: None)
  Receive Date: 20110517
  Receipt Date: 20110512
  Transmission Date: 20111010
  Serious: Yes (Other)
  Sender: FDA-Public Use
  Company Number: CA-ABBOTT-11P-028-0725581-00

PATIENT
  Sex: Female
  Weight: 118.04 kg

DRUGS (3)
  1. MEDICATION FOR RHEUMATOID ARTHRITIS [Concomitant]
     Indication: RHEUMATOID ARTHRITIS
  2. MEDICATION FOR HIGH BLOOD PRESSURE [Concomitant]
     Indication: HYPERTENSION
  3. HUMIRA [Suspect]
     Indication: RHEUMATOID ARTHRITIS
     Route: 058
     Dates: start: 20050322, end: 20110401

REACTIONS (2)
  - WEIGHT INCREASED [None]
  - ARTHRITIS [None]
